FAERS Safety Report 12482329 (Version 2)
Quarter: 2016Q3

REPORT INFORMATION
  Report Type: Spontaneous
  Country: US (occurrence: US)
  Receive Date: 20160620
  Receipt Date: 20160907
  Transmission Date: 20161109
  Serious: Yes (Other)
  Sender: FDA-Public Use
  Company Number: PHEH2016US015141

PATIENT
  Age: 54 Year
  Sex: Male
  Weight: 60 kg

DRUGS (2)
  1. MEKINIST [Suspect]
     Active Substance: TRAMETINIB DIMETHYL SULFOXIDE
     Indication: MALIGNANT MELANOMA
     Dosage: 2 MG, QD
     Route: 048
     Dates: start: 20150310, end: 20160615
  2. TAFINLAR [Suspect]
     Active Substance: DABRAFENIB MESYLATE
     Indication: MALIGNANT MELANOMA
     Dosage: 150 MG, BID
     Route: 048
     Dates: start: 20150310, end: 20160615

REACTIONS (5)
  - Metastases to central nervous system [Recovered/Resolved]
  - Visual impairment [Unknown]
  - Malignant neoplasm progression [Unknown]
  - Dysarthria [Unknown]
  - Headache [Unknown]

NARRATIVE: CASE EVENT DATE: 20160417
